FAERS Safety Report 7398265-X (Version None)
Quarter: 2011Q2

REPORT INFORMATION
  Report Type: 
  Country: None (occurrence: None)
  Receive Date: 20110406
  Receipt Date: 20110404
  Transmission Date: 20111010
  Serious: Yes (Other)
  Sender: FDA-Public Use
  Company Number: AT-BAYER-2011-028729

PATIENT
  Age: 65 Year
  Sex: Male

DRUGS (1)
  1. GADOVIST [Suspect]
     Indication: PULMONARY EMBOLISM
     Dosage: 7.5 ML, UNK
     Route: 042
     Dates: start: 20110321, end: 20110321

REACTIONS (5)
  - SNEEZING [None]
  - COUGH [None]
  - NAUSEA [None]
  - EXCESSIVE EYE BLINKING [None]
  - LACRIMATION INCREASED [None]
